FAERS Safety Report 5672175-8 (Version None)
Quarter: 2008Q1

REPORT INFORMATION
  Report Type: 
  Country: None (occurrence: None)
  Receive Date: 20080317
  Receipt Date: 20080306
  Transmission Date: 20080703
  Serious: Yes (Hospitalization)
  Sender: FDA-Public Use
  Company Number: 166735

PATIENT
  Age: 45 Year
  Sex: Male
  Weight: 88.4514 kg

DRUGS (5)
  1. AVONEX [Suspect]
     Indication: MULTIPLE SCLEROSIS
     Dosage: 30 UG; QW; IM
     Route: 030
  2. IBUPROFEN [Concomitant]
  3. VALIUM [Concomitant]
  4. VICODIN [Concomitant]
  5. MODAFINIL [Concomitant]

REACTIONS (6)
  - COMA [None]
  - GRAND MAL CONVULSION [None]
  - LUNG INFECTION [None]
  - RESPIRATORY ARREST [None]
  - SLEEP APNOEA SYNDROME [None]
  - SUICIDAL IDEATION [None]
